FAERS Safety Report 16078785 (Version 1)
Quarter: 2019Q1

REPORT INFORMATION
  Report Type: Spontaneous
  Country: US (occurrence: US)
  Receive Date: 20190315
  Receipt Date: 20190315
  Transmission Date: 20190418
  Serious: Yes (Other)
  Sender: FDA-Public Use
  Company Number: US-BIO PRODUCTS LABORATORY LTD-2064064

PATIENT
  Age: 18 Year
  Sex: Female

DRUGS (2)
  1. GENERIC IVIG [Suspect]
     Active Substance: HUMAN IMMUNOGLOBULIN G
     Indication: IMMUNE THROMBOCYTOPENIC PURPURA
     Route: 042
  2. ELTROMBOPAG [Suspect]
     Active Substance: ELTROMBOPAG

REACTIONS (3)
  - Hypernatraemia [Unknown]
  - Laboratory test interference [Unknown]
  - Diabetes insipidus [Unknown]
